FAERS Safety Report 16115583 (Version 2)
Quarter: 2019Q2

REPORT INFORMATION
  Report Type: Report from Study
  Country: None (occurrence: BR)
  Receive Date: 20190325
  Receipt Date: 20190408
  Transmission Date: 20190711
  Serious: No
  Sender: FDA-Public Use
  Company Number: BR-ABBVIE-19K-020-2715596-00

PATIENT
  Sex: Male

DRUGS (3)
  1. HUMIRA [Suspect]
     Active Substance: ADALIMUMAB
     Route: 058
  2. HUMIRA [Suspect]
     Active Substance: ADALIMUMAB
     Indication: CROHN^S DISEASE
     Dosage: LOADING DOSE WEEK 0
     Route: 058
     Dates: start: 20160811, end: 20160811
  3. HUMIRA [Suspect]
     Active Substance: ADALIMUMAB
     Dosage: LOADING DOSE WEEK 1
     Route: 058
     Dates: start: 201608, end: 201608

REACTIONS (11)
  - Genital erythema [Unknown]
  - Dizziness [Unknown]
  - Genital lesion [Unknown]
  - Genital discolouration [Unknown]
  - Muscular weakness [Unknown]
  - Hypersensitivity [Unknown]
  - Dyspepsia [Unknown]
  - Influenza [Unknown]
  - Pruritus genital [Unknown]
  - Pain [Unknown]
  - Chest pain [Unknown]

NARRATIVE: CASE EVENT DATE: 2018
